FAERS Safety Report 11556535 (Version 1)
Quarter: 2015Q3

REPORT INFORMATION
  Report Type: Spontaneous
  Country: US (occurrence: US)
  Receive Date: 20150925
  Receipt Date: 20150925
  Transmission Date: 20151125
  Serious: No
  Sender: FDA-Public Use
  Company Number: US-WATSON-2015-05314

PATIENT
  Sex: Female
  Weight: 42 kg

DRUGS (1)
  1. TEMAZEPAM (AELLC) [Suspect]
     Active Substance: TEMAZEPAM
     Indication: PRODUCT USED FOR UNKNOWN INDICATION

REACTIONS (6)
  - Headache [Unknown]
  - Drug effect increased [Unknown]
  - Fatigue [Unknown]
  - Arthritis [Unknown]
  - Disorientation [Unknown]
  - Movement disorder [Unknown]
